FAERS Safety Report 7092074-7 (Version None)
Quarter: 2010Q4

REPORT INFORMATION
  Report Type: 
  Country: None (occurrence: None)
  Receive Date: 20101109
  Receipt Date: 20101103
  Transmission Date: 20110411
  Serious: Yes (Death, Hospitalization, Other)
  Sender: FDA-Public Use
  Company Number: DE-CELGENEUS-062-50794-10101385

PATIENT
  Age: 87 Year
  Sex: Male

DRUGS (8)
  1. VIDAZA [Suspect]
     Route: 058
     Dates: start: 20070529, end: 20070902
  2. VALPROIC ACID [Suspect]
     Route: 065
     Dates: end: 20070518
  3. ZIENAM [Concomitant]
     Route: 065
     Dates: start: 20070526, end: 20070602
  4. FORTUM [Concomitant]
     Route: 065
     Dates: start: 20070602, end: 20070608
  5. FORTUM [Concomitant]
     Route: 065
     Dates: start: 20070610, end: 20070614
  6. VANCOMYCIN [Concomitant]
     Route: 065
     Dates: start: 20070602, end: 20070608
  7. VANCOMYCIN [Concomitant]
     Route: 065
     Dates: start: 20070610, end: 20070612
  8. VFEND [Concomitant]
     Route: 048
     Dates: start: 20070524, end: 20070610

REACTIONS (10)
  - ANAEMIA [None]
  - DISEASE PROGRESSION [None]
  - FATIGUE [None]
  - FUNGAL SEPSIS [None]
  - GENERAL PHYSICAL CONDITION ABNORMAL [None]
  - NEUTROPENIC INFECTION [None]
  - PNEUMONIA [None]
  - SUBDURAL HAEMATOMA [None]
  - SUICIDAL BEHAVIOUR [None]
  - THROMBOCYTOPENIA [None]
